FAERS Safety Report 6257196-9 (Version None)
Quarter: 2009Q3

REPORT INFORMATION
  Report Type: 
  Country: None (occurrence: None)
  Receive Date: 20090706
  Receipt Date: 20090623
  Transmission Date: 20100115
  Serious: Yes (Death)
  Sender: FDA-Public Use
  Company Number: US-ELI_LILLY_AND_COMPANY-US200906005648

PATIENT
  Age: 82 Year
  Sex: Female

DRUGS (1)
  1. ZYPREXA [Suspect]
     Indication: MANIA
     Dosage: 5 MG, UNK
     Dates: start: 20050101

REACTIONS (1)
  - CARDIAC ARREST [None]
